FAERS Safety Report 6171932-1 (Version None)
Quarter: 2009Q2

REPORT INFORMATION
  Report Type: 
  Country: None (occurrence: None)
  Receive Date: 20090429
  Receipt Date: 20090420
  Transmission Date: 20091009
  Serious: Yes (Hospitalization)
  Sender: FDA-Public Use
  Company Number: GB-ELI_LILLY_AND_COMPANY-GB200904005126

PATIENT
  Age: 64 Year
  Sex: Male
  Weight: 116 kg

DRUGS (14)
  1. BYETTA [Suspect]
     Dosage: UNK, UNKNOWN
     Route: 058
     Dates: start: 20080401
  2. ATENOLOL [Concomitant]
     Dosage: 100 MG, UNKNOWN
     Route: 065
  3. DOTHIEPIN HYDROCHLORIDE [Concomitant]
     Dosage: UNK, UNKNOWN
     Route: 065
  4. DOXAZOSIN MESYLATE [Concomitant]
     Dosage: 2 MG, 2/D
     Route: 065
  5. FELODIPINE [Concomitant]
     Dosage: 10 MG, UNKNOWN
     Route: 065
  6. FENOFIBRATE [Concomitant]
     Dosage: 200 MG, UNKNOWN
     Route: 065
  7. FUROSEMIDE [Concomitant]
     Dosage: 40 MG, UNKNOWN
     Route: 065
  8. GLIBENCLAMIDE [Concomitant]
     Dosage: 15 MG, UNKNOWN
     Route: 048
  9. HYDRALAZINE HCL [Concomitant]
     Dosage: 50 MG, 3/D
     Route: 065
  10. METFORMIN HCL [Concomitant]
     Dosage: 1 G, 2/D
     Route: 048
  11. SILDENAFIL CITRATE [Concomitant]
     Dosage: UNK, AS NEEDED
     Route: 065
  12. SIMVASTATIN [Concomitant]
     Dosage: 40 MG, UNKNOWN
     Route: 065
  13. SPIRONOLACTONE [Concomitant]
     Dosage: 25 MG, UNKNOWN
     Route: 065
  14. ALCOHOL [Concomitant]
     Dosage: UNK, UNKNOWN
     Route: 065

REACTIONS (1)
  - PANCREATITIS ACUTE [None]
